FAERS Safety Report 23213755 (Version 1)
Quarter: 2023Q4

REPORT INFORMATION
  Report Type: Report from Study
  Country: US (occurrence: US)
  Receive Date: 20231121
  Receipt Date: 20231121
  Transmission Date: 20240109
  Serious: Yes (Hospitalization)
  Sender: FDA-Public Use
  Company Number: US-Eisai-EC-2023-153223

PATIENT
  Age: 65 Year
  Sex: Female

DRUGS (5)
  1. LENVIMA [Suspect]
     Active Substance: LENVATINIB
     Indication: Renal cell carcinoma
     Route: 048
     Dates: start: 2022, end: 20230519
  2. LENVIMA [Suspect]
     Active Substance: LENVATINIB
     Route: 048
     Dates: start: 20230624, end: 202309
  3. LENVIMA [Suspect]
     Active Substance: LENVATINIB
     Dosage: 4 DAYS ON 3 DAYS OFF
     Route: 048
     Dates: start: 20230911, end: 202310
  4. LENVIMA [Suspect]
     Active Substance: LENVATINIB
     Dosage: 4 DAYS ON 2 DAYS OFF
     Route: 048
     Dates: start: 202310, end: 2023
  5. EVEROLIMUS [Suspect]
     Active Substance: EVEROLIMUS
     Indication: Product used for unknown indication
     Dosage: DOSE AND FREQUENCY UNKNOWN

REACTIONS (1)
  - Gallbladder disorder [Unknown]

NARRATIVE: CASE EVENT DATE: 20230101
